FAERS Safety Report 5834295-4 (Version None)
Quarter: 2008Q3

REPORT INFORMATION
  Report Type: 
  Country: None (occurrence: None)
  Receive Date: 20080805
  Receipt Date: 20080730
  Transmission Date: 20090109
  Serious: Yes (Hospitalization)
  Sender: FDA-Public Use
  Company Number: PHHY2008DE16622

PATIENT
  Sex: Male

DRUGS (1)
  1. CARBAMAZEPINE [Suspect]
     Indication: TRIGEMINAL NEURALGIA
     Dosage: 400 MG, TID

REACTIONS (3)
  - ACTIVATED PARTIAL THROMBOPLASTIN TIME [None]
  - EPISTAXIS [None]
  - PROTHROMBIN TIME [None]
